FAERS Safety Report 7689190-5 (Version None)
Quarter: 2011Q3

REPORT INFORMATION
  Report Type: 
  Country: None (occurrence: None)
  Receive Date: 20110817
  Receipt Date: 20110810
  Transmission Date: 20111222
  Serious: Yes (Other)
  Sender: FDA-Public Use
  Company Number: GB-TEVA-295905ISR

PATIENT
  Age: 57 Year
  Sex: Male

DRUGS (1)
  1. SIMAVASTATIN [Suspect]

REACTIONS (5)
  - DIABETES MELLITUS [None]
  - ACROCHORDON [None]
  - AMNESIA [None]
  - RASH [None]
  - MUSCLE SPASMS [None]
